FAERS Safety Report 12699466 (Version 1)
Quarter: 2016Q3

REPORT INFORMATION
  Report Type: Spontaneous
  Country: NL (occurrence: NL)
  Receive Date: 20160830
  Receipt Date: 20160830
  Transmission Date: 20161109
  Serious: Yes (Hospitalization)
  Sender: FDA-Public Use
  Company Number: NL-RICONPHARMA LLC-2016RIC00005

PATIENT
  Age: 45 Year
  Sex: Female

DRUGS (1)
  1. QUININE SULFATE. [Suspect]
     Active Substance: QUININE SULFATE
     Indication: MALARIA
     Dosage: 10 MG/KG, 3X/DAY FOR SEVERAL DAYS IN BOTH UPPER LEGS
     Route: 030

REACTIONS (1)
  - Pseudocyst [Recovered/Resolved]
